FAERS Safety Report 21878502 (Version 3)
Quarter: 2023Q2

REPORT INFORMATION
  Report Type: Report from Study
  Country: FR (occurrence: None)
  Receive Date: 20230118
  Receipt Date: 20230623
  Transmission Date: 20230721
  Serious: Yes (Hospitalization, Other)
  Sender: FDA-Public Use
  Company Number: 2023A005796

PATIENT
  Age: 84 Year
  Sex: Male
  Weight: 78 kg

DRUGS (4)
  1. IMFINZI [Suspect]
     Active Substance: DURVALUMAB
     Indication: Cholangiocarcinoma
     Dosage: 1500MG EVERY 21ST DAY
     Route: 042
     Dates: start: 20221222, end: 20221222
  2. IMFINZI [Suspect]
     Active Substance: DURVALUMAB
     Indication: Biliary cancer metastatic
     Dosage: 1500MG EVERY 21ST DAY
     Route: 042
     Dates: start: 20221222, end: 20221222
  3. CISPLATIN [Suspect]
     Active Substance: CISPLATIN
     Indication: Cholangiocarcinoma
     Dosage: 25MG D1, D8 (25MG/M2) REDUCED TO 54.5 PERCENT OF THE DOSE THEORETICAL)
     Route: 042
     Dates: start: 20221222, end: 20221222
  4. GEMCITABINE HYDROCHLORIDE [Suspect]
     Active Substance: GEMCITABINE HYDROCHLORIDE
     Indication: Cholangiocarcinoma
     Dosage: 1600 MG D1, D8 (1000 MG/M2) REDUCED TO 87 PERCENT OF THE DOSE THEORETICAL)
     Route: 042
     Dates: start: 20221222, end: 20221222

REACTIONS (10)
  - Urinary tract infection [Not Recovered/Not Resolved]
  - Bicytopenia [Not Recovered/Not Resolved]
  - General physical health deterioration [Not Recovered/Not Resolved]
  - Asthenia [Unknown]
  - Respiratory distress [Unknown]
  - Decreased appetite [Unknown]
  - Weight decreased [Unknown]
  - Faeces discoloured [Unknown]
  - Anaemia [Unknown]
  - Thrombocytopenia [Unknown]

NARRATIVE: CASE EVENT DATE: 20221230
